FAERS Safety Report 8976227 (Version 1)
Quarter: 2012Q4

REPORT INFORMATION
  Report Type: 
  Country: US (occurrence: US)
  Receive Date: 20121219
  Receipt Date: 20121219
  Transmission Date: 20130627
  Serious: No
  Sender: FDA-Public Use
  Company Number: US-AMGEN-USASP2012064450

PATIENT
  Sex: Female

DRUGS (5)
  1. PROLIA [Suspect]
     Indication: OSTEOPOROSIS POSTMENOPAUSAL
     Dosage: UNK
     Dates: start: 201209
  2. VITAMINS                           /00067501/ [Concomitant]
  3. SYNTHROID [Concomitant]
     Dosage: UNK
  4. ESTROGEN [Concomitant]
     Dosage: UNK
  5. WELLBUTRIN [Concomitant]
     Dosage: UNK

REACTIONS (5)
  - Fatigue [Recovered/Resolved]
  - Nausea [Unknown]
  - Somnolence [Unknown]
  - Decreased appetite [Unknown]
  - Dyspepsia [Unknown]
